FAERS Safety Report 9448559 (Version 1)
Quarter: 2013Q3

REPORT INFORMATION
  Report Type: Spontaneous
  Country: US (occurrence: US)
  Receive Date: 20130808
  Receipt Date: 20130808
  Transmission Date: 20140515
  Serious: No
  Sender: FDA-Public Use
  Company Number: US-BAUSCH-BL-2012-001354

PATIENT
  Age: 90 Year
  Sex: Female

DRUGS (1)
  1. CROMOLYN SODIUM NASAL SOLUTION USP [Suspect]
     Indication: DIZZINESS
     Dosage: 1 SPRAY IN EACH NOSTRIL, ONCE DAILY
     Route: 045
     Dates: start: 20121005, end: 20121006

REACTIONS (2)
  - Off label use [Unknown]
  - Therapeutic response unexpected [Recovered/Resolved]
